FAERS Safety Report 6294812-X (Version None)
Quarter: 2009Q3

REPORT INFORMATION
  Report Type: 
  Country: None (occurrence: None)
  Receive Date: 20090731
  Receipt Date: 20090731
  Transmission Date: 20100115
  Serious: Yes (Other)
  Sender: FDA-Public Use
  Company Number: None

PATIENT
  Age: 28 Year
  Sex: Female
  Weight: 63.5036 kg

DRUGS (2)
  1. EFFEXOR XR [Suspect]
     Indication: ANXIETY
     Dosage: 125MG DAILY PO
     Route: 048
     Dates: start: 20070401, end: 20090728
  2. EFFEXOR XR [Suspect]
     Indication: DEPRESSION
     Dosage: 125MG DAILY PO
     Route: 048
     Dates: start: 20070401, end: 20090728

REACTIONS (7)
  - CARDIAC FLUTTER [None]
  - DISORIENTATION [None]
  - DIZZINESS [None]
  - DRUG DOSE OMISSION [None]
  - HYPONATRAEMIA [None]
  - NAUSEA [None]
  - PARAESTHESIA [None]
